FAERS Safety Report 5196468-6 (Version None)
Quarter: 2006Q4

REPORT INFORMATION
  Report Type: 
  Country: None (occurrence: None)
  Receive Date: 20061227
  Receipt Date: 20061212
  Transmission Date: 20070319
  Serious: Yes (Hospitalization)
  Sender: FDA-Public Use
  Company Number: FABR-11763

PATIENT
  Age: 47 Year
  Sex: Male

DRUGS (1)
  1. FABRAZYME [Suspect]
     Indication: FABRY'S DISEASE
     Dosage: 70 MG Q2WKS IV
     Route: 042
     Dates: start: 20020101

REACTIONS (7)
  - BODY TEMPERATURE INCREASED [None]
  - INFUSION RELATED REACTION [None]
  - PAIN [None]
  - PROTEINURIA [None]
  - RENAL COLIC [None]
  - RENAL IMPAIRMENT [None]
  - URETERAL DISORDER [None]
